FAERS Safety Report 20508832 (Version 6)
Quarter: 2022Q2

REPORT INFORMATION
  Report Type: Spontaneous
  Country: PL (occurrence: PL)
  Receive Date: 20220223
  Receipt Date: 20220526
  Transmission Date: 20220721
  Serious: Yes (Hospitalization, Other)
  Sender: FDA-Public Use
  Company Number: PL-MYLANLABS-2022M1014569

PATIENT
  Age: 37 Year
  Sex: Female

DRUGS (13)
  1. ARIPIPRAZOLE [Suspect]
     Active Substance: ARIPIPRAZOLE
     Indication: Depression
     Dosage: 30 MILLIGRAM, QD
     Route: 065
  2. ARIPIPRAZOLE [Suspect]
     Active Substance: ARIPIPRAZOLE
     Indication: Schizophrenia
  3. METHYLPREDNISOLONE [Suspect]
     Active Substance: METHYLPREDNISOLONE
     Indication: Meniere^s disease
     Dosage: UNK
     Route: 065
  4. OLANZAPINE [Suspect]
     Active Substance: OLANZAPINE
     Indication: Schizophrenia
     Dosage: 10 MILLIGRAM, QD
     Route: 065
  5. OLANZAPINE [Suspect]
     Active Substance: OLANZAPINE
     Indication: Depression
  6. OLANZAPINE [Suspect]
     Active Substance: OLANZAPINE
     Indication: Psychotic disorder
  7. PREGABALIN [Suspect]
     Active Substance: PREGABALIN
     Indication: Schizophrenia
     Dosage: 450 MILLIGRAM, QD
     Route: 065
  8. PREGABALIN [Suspect]
     Active Substance: PREGABALIN
     Indication: Depression
     Dosage: 150 MILLIGRAM, QD
     Route: 065
  9. DULOXETINE [Suspect]
     Active Substance: DULOXETINE
     Indication: Schizophrenia
     Dosage: 30 MILLIGRAM, QD
     Route: 065
  10. DULOXETINE [Suspect]
     Active Substance: DULOXETINE
     Indication: Depression
  11. LAMOTRIGINE [Suspect]
     Active Substance: LAMOTRIGINE
     Indication: Acute psychosis
     Dosage: 50 MILLIGRAM, QD
  12. CARBAMAZEPINE [Suspect]
     Active Substance: CARBAMAZEPINE
     Indication: Depression
     Dosage: 400 MILLIGRAM, QD
     Route: 065
  13. CLOMIPRAMINE [Suspect]
     Active Substance: CLOMIPRAMINE
     Indication: Depression
     Dosage: 150 MILLIGRAM, QD
     Route: 065

REACTIONS (14)
  - Psychiatric symptom [Unknown]
  - Body mass index decreased [Unknown]
  - Drug ineffective [Unknown]
  - Condition aggravated [Unknown]
  - Suicidal ideation [Recovering/Resolving]
  - Depression suicidal [Recovered/Resolved]
  - Therapeutic product effect incomplete [Unknown]
  - Schizophrenia [Unknown]
  - Anxiety [Unknown]
  - Muscle rigidity [Unknown]
  - Paralogism [Unknown]
  - Stereotypy [Unknown]
  - Withdrawal syndrome [Unknown]
  - Restlessness [Unknown]
